FAERS Safety Report 7166455-7 (Version None)
Quarter: 2010Q4

REPORT INFORMATION
  Report Type: 
  Country: None (occurrence: None)
  Receive Date: 20101216
  Receipt Date: 20101202
  Transmission Date: 20110411
  Serious: Yes (Other)
  Sender: FDA-Public Use
  Company Number: PHEH2010US03873

PATIENT
  Sex: Female
  Weight: 65.8 kg

DRUGS (12)
  1. ESTRADERM [Suspect]
     Dosage: 0.05
     Route: 062
     Dates: start: 19950915
  2. COMBIPATCH [Suspect]
     Dosage: UNK
     Route: 062
     Dates: start: 19990413
  3. CLIMARA ^SCHERING^ [Suspect]
     Dosage: UNK
     Dates: start: 19960101, end: 20020101
  4. PREMARIN [Suspect]
     Dosage: UNK
     Dates: start: 19860101, end: 19930101
  5. PROVERA [Suspect]
     Dosage: UNK
     Dates: start: 19860101, end: 20020101
  6. MENEST [Suspect]
     Dosage: UNK
     Dates: start: 19940101, end: 20020101
  7. IBUPROFEN [Concomitant]
  8. MEDROL [Concomitant]
  9. DIAZEPAM [Concomitant]
  10. EFUDEX [Concomitant]
  11. TOBRADEX [Concomitant]
  12. IMIPRAMINE [Concomitant]

REACTIONS (16)
  - ACTINIC KERATOSIS [None]
  - ARTERIAL STENT INSERTION [None]
  - ARTERIOSCLEROSIS [None]
  - BACK PAIN [None]
  - BASAL CELL CARCINOMA [None]
  - BONE DENSITY DECREASED [None]
  - BREAST CANCER [None]
  - BREAST DISORDER [None]
  - FIBROCYSTIC BREAST DISEASE [None]
  - LOW DENSITY LIPOPROTEIN INCREASED [None]
  - MALIGNANT BREAST LUMP REMOVAL [None]
  - MALIGNANT TUMOUR EXCISION [None]
  - NIPPLE DISORDER [None]
  - SEBORRHOEIC KERATOSIS [None]
  - SPINAL OSTEOARTHRITIS [None]
  - SQUAMOUS CELL CARCINOMA [None]
